FAERS Safety Report 7900580-5 (Version None)
Quarter: 2011Q4

REPORT INFORMATION
  Report Type: 
  Country: None (occurrence: None)
  Receive Date: 20111108
  Receipt Date: 20110606
  Transmission Date: 20120403
  Serious: No
  Sender: FDA-Public Use
  Company Number: US-BAYER-2011-049787

PATIENT
  Sex: Female

DRUGS (1)
  1. CLIMARA PRO [Suspect]
     Route: 062

REACTIONS (3)
  - APPLICATION SITE IRRITATION [None]
  - PRODUCT ADHESION ISSUE [None]
  - APPLICATION SITE ERYTHEMA [None]
